FAERS Safety Report 5028793-3 (Version None)
Quarter: 2006Q2

REPORT INFORMATION
  Report Type: 
  Country: None (occurrence: None)
  Receive Date: 20060619
  Receipt Date: 20060124
  Transmission Date: 20061013
  Serious: Yes (Hospitalization, Other)
  Sender: FDA-Public Use
  Company Number: US-AVENTIS-200610841US

PATIENT
  Age: 41 Year
  Sex: Female
  Weight: 80 kg

DRUGS (4)
  1. KETEK [Suspect]
     Indication: SINUSITIS
     Route: 048
     Dates: start: 20060501
  2. PRAVACHOL [Concomitant]
     Indication: BLOOD CHOLESTEROL INCREASED
     Dosage: DOSE: UNK
  3. CLONAZEPAM [Concomitant]
  4. NEURONTIN [Concomitant]
     Indication: RESTLESS LEGS SYNDROME

REACTIONS (24)
  - ABDOMINAL PAIN [None]
  - ALANINE AMINOTRANSFERASE INCREASED [None]
  - ANAEMIA [None]
  - ASPARTATE AMINOTRANSFERASE INCREASED [None]
  - ASTHENIA [None]
  - ATELECTASIS [None]
  - BLOOD BILIRUBIN INCREASED [None]
  - FATIGUE [None]
  - FIBROMYALGIA [None]
  - GALLBLADDER DISORDER [None]
  - GALLBLADDER OPERATION [None]
  - HEPATIC FAILURE [None]
  - HEPATITIS [None]
  - HEPATOMEGALY [None]
  - INFLUENZA LIKE ILLNESS [None]
  - MYALGIA [None]
  - NAUSEA [None]
  - PAIN [None]
  - PLEURAL EFFUSION [None]
  - PROTHROMBIN TIME PROLONGED [None]
  - PYREXIA [None]
  - RED BLOOD CELL SEDIMENTATION RATE INCREASED [None]
  - VOMITING [None]
  - WHEEZING [None]
